FAERS Safety Report 7241937-8 (Version None)
Quarter: 2011Q1

REPORT INFORMATION
  Report Type: 
  Country: None (occurrence: None)
  Receive Date: 20110124
  Receipt Date: 20110114
  Transmission Date: 20110831
  Serious: Yes (Death)
  Sender: FDA-Public Use
  Company Number: GB-ABBOTT-10P-167-0693453-00

PATIENT
  Age: 25 Year
  Sex: Male

DRUGS (19)
  1. VALGANCICLOVIR HCL [Concomitant]
     Indication: PRODUCT USED FOR UNKNOWN INDICATION
  2. DARUNAVIR [Suspect]
     Indication: HIV INFECTION
  3. PROTHIONAMIDE [Concomitant]
     Indication: ANTIBIOTIC PROPHYLAXIS
     Route: 042
  4. ETHAMBUTOL HYDROCHLORIDE [Concomitant]
     Indication: TUBERCULOSIS
     Route: 042
  5. PYRAZINAMIDE [Concomitant]
     Indication: TUBERCULOSIS
     Route: 042
  6. RITONAVIR [Suspect]
     Indication: HIV INFECTION
  7. RITONAVIR [Suspect]
     Indication: ANTIBIOTIC PROPHYLAXIS
  8. ONDANSETRON [Suspect]
     Indication: HIV INFECTION
  9. CLOFAZAMINE [Concomitant]
     Indication: TUBERCULOSIS
  10. MOXIFLOXACIN [Suspect]
     Indication: TUBERCULOSIS
  11. AMIKACIN [Concomitant]
     Indication: TUBERCULOSIS
     Route: 042
  12. CYCLOSERINE [Concomitant]
     Indication: TUBERCULOSIS
  13. TRUVADA [Concomitant]
     Indication: HIV INFECTION
  14. MOXIFLOXACIN [Suspect]
     Indication: HIV INFECTION
  15. DARUNAVIR [Suspect]
     Indication: TUBERCULOSIS
  16. EFAVIRENZ [Concomitant]
     Indication: ANTIBIOTIC PROPHYLAXIS
  17. FLUCONAZOLE [Suspect]
     Indication: ORAL CANDIDIASIS
  18. LINEZOLID [Concomitant]
     Indication: TUBERCULOSIS
  19. HEPARIN LOW MOLECULAR WEIGHT UNSPECIFIED [Concomitant]
     Indication: TUBERCULOSIS

REACTIONS (3)
  - CARDIOVASCULAR DISORDER [None]
  - ARRHYTHMIA [None]
  - SUDDEN DEATH [None]
